FAERS Safety Report 5126622-0 (Version None)
Quarter: 2006Q4

REPORT INFORMATION
  Report Type: 
  Country: None (occurrence: None)
  Receive Date: 20061013
  Receipt Date: 20060920
  Transmission Date: 20070319
  Serious: Yes (Other)
  Sender: FDA-Public Use
  Company Number: PHNU2006DE03192

PATIENT
  Age: 15 Year
  Sex: Female

DRUGS (1)
  1. RITALIN [Suspect]
     Indication: ATTENTION DEFICIT/HYPERACTIVITY DISORDER
     Dosage: 30 MG/DAY
     Route: 048
     Dates: start: 19990101, end: 20051016

REACTIONS (2)
  - MYCOPLASMA INFECTION [None]
  - MYOCARDITIS [None]
